FAERS Safety Report 7526333-8 (Version None)
Quarter: 2011Q2

REPORT INFORMATION
  Report Type: 
  Country: None (occurrence: None)
  Receive Date: 20110606
  Receipt Date: 20110523
  Transmission Date: 20111010
  Serious: No
  Sender: FDA-Public Use
  Company Number: US-B.I. PHARMACEUTICALS,INC./RIDGEFIELD-2011-BP-11624BP

PATIENT
  Sex: Male

DRUGS (4)
  1. PREVACID [Concomitant]
  2. PRADAXA [Suspect]
     Indication: CARDIAC DISORDER
  3. PRADAXA [Suspect]
     Indication: CARDIAC FIBRILLATION
  4. METOPROLOL ER SUCCINATE [Concomitant]
     Dosage: 50 MG

REACTIONS (4)
  - THROAT IRRITATION [None]
  - FEELING ABNORMAL [None]
  - OROPHARYNGEAL PAIN [None]
  - FATIGUE [None]
